FAERS Safety Report 5311585-5 (Version None)
Quarter: 2007Q2

REPORT INFORMATION
  Report Type: 
  Country: None (occurrence: None)
  Receive Date: 20070430
  Receipt Date: 20070416
  Transmission Date: 20071010
  Serious: Yes (Hospitalization)
  Sender: FDA-Public Use
  Company Number: US-ROCHE-492371

PATIENT
  Age: 82 Year
  Sex: Male
  Weight: 68.6 kg

DRUGS (3)
  1. CAPECITABINE [Suspect]
     Dosage: GIVEN ON DAYS 1-8 EVERY TWO WEEKS.
     Route: 048
     Dates: start: 20070316
  2. BEVACIZUMAB [Suspect]
     Dosage: GIVEN ON DAYS 1 EVERY TWO WEEKS.
     Route: 042
     Dates: start: 20070316
  3. OXALIPLATIN [Suspect]
     Dosage: GIVEN ON DAY 1 EVERY TWO WEEKS.
     Route: 042
     Dates: start: 20070316

REACTIONS (1)
  - MUCOSAL INFLAMMATION [None]
